FAERS Safety Report 5483645-X (Version None)
Quarter: 2007Q4

REPORT INFORMATION
  Report Type: 
  Country: None (occurrence: None)
  Receive Date: 20071010
  Receipt Date: 20071001
  Transmission Date: 20080405
  Serious: Yes (Other)
  Sender: FDA-Public Use
  Company Number: CHPA2007US10202

PATIENT
  Age: 29 Year
  Sex: Female

DRUGS (1)
  1. TRIAMINIC THIN STRIPS0-COUGH AND RUNNY NOSE (NCH)(DIPHENHYDRAMINE HYDR [Suspect]

REACTIONS (4)
  - ANAPHYLACTIC REACTION [None]
  - HYPERSENSITIVITY [None]
  - HYPOAESTHESIA ORAL [None]
  - NERVOUSNESS [None]
